FAERS Safety Report 8113497-0 (Version None)
Quarter: 2012Q1

REPORT INFORMATION
  Report Type: 
  Country: None (occurrence: None)
  Receive Date: 20120203
  Receipt Date: 20120120
  Transmission Date: 20120608
  Serious: Yes (Hospitalization)
  Sender: FDA-Public Use
  Company Number: GB-CELGENEUS-167-21880-12010698

PATIENT
  Sex: Female
  Weight: 57.9 kg

DRUGS (22)
  1. ITRACONAZOLE [Concomitant]
     Indication: BONE MARROW TRANSPLANT
     Dosage: 280 MILLIGRAM
     Route: 048
     Dates: start: 20111212
  2. CYCLOSPORINE [Suspect]
     Indication: IMMUNOSUPPRESSANT DRUG THERAPY
     Dosage: 160 MILLIGRAM
     Route: 065
     Dates: start: 20111124
  3. MORPHINE SULFATE [Concomitant]
     Route: 048
     Dates: start: 20120122
  4. ACYCLOVIR [Concomitant]
     Indication: BONE MARROW TRANSPLANT
     Route: 048
     Dates: start: 20111203
  5. MOVIPREP [Concomitant]
     Route: 048
     Dates: start: 20111121
  6. DALTEPARIN SODIUM [Concomitant]
     Indication: THROMBOSIS PROPHYLAXIS
     Route: 058
     Dates: start: 20120102
  7. URSOD [Concomitant]
     Indication: BONE MARROW TRANSPLANT
     Route: 048
     Dates: start: 20111119
  8. MORPHINE SULFATE [Concomitant]
     Indication: PAIN
     Route: 048
     Dates: start: 20111119
  9. ACETAMINOPHEN [Concomitant]
     Indication: PAIN
     Route: 048
     Dates: start: 20111119
  10. AMLOPINE [Concomitant]
     Route: 048
     Dates: start: 20111203
  11. MAXOLON [Concomitant]
     Dosage: 10 MILLIGRAM
     Route: 048
     Dates: start: 20111203
  12. FOLIC ACID [Concomitant]
     Route: 048
     Dates: start: 20120120
  13. REVLIMID [Suspect]
     Indication: MULTIPLE MYELOMA
     Dosage: 10 MILLIGRAM
     Route: 048
     Dates: start: 20111230, end: 20120119
  14. ANTI-THYMOCYTE GLOBULIN NOS [Suspect]
     Dosage: 579 MILLIGRAM
     Route: 065
     Dates: start: 20111122, end: 20111123
  15. LANSOPRAZOLE [Concomitant]
     Indication: ANTACID THERAPY
     Dosage: 30 MILLIGRAM
     Route: 048
     Dates: start: 20111129
  16. GABAPENTIN [Concomitant]
     Indication: PAIN
     Dosage: 900 MILLIGRAM
     Route: 048
     Dates: start: 20111212
  17. GABAPENTIN [Concomitant]
     Dosage: 900 MILLIGRAM
     Route: 048
     Dates: start: 20120120
  18. CYCLOSPORINE [Suspect]
     Route: 065
     Dates: start: 20120120, end: 20120123
  19. FOLIC ACID [Concomitant]
     Indication: PROPHYLAXIS
     Dosage: 5 MILLIGRAM
     Route: 048
     Dates: start: 20111213
  20. ITRACONAZOLE [Concomitant]
     Dosage: 280 MILLIGRAM
     Route: 048
     Dates: start: 20120120
  21. FLUDARABINE [Suspect]
     Dosage: 48 MILLIGRAM
     Route: 065
     Dates: start: 20111122, end: 20111123
  22. AMLOPINE [Concomitant]
     Dosage: 5 MILLIGRAM
     Route: 048
     Dates: start: 20120120

REACTIONS (4)
  - SUPERIOR VENA CAVA SYNDROME [None]
  - UPPER RESPIRATORY TRACT INFECTION [None]
  - LOWER RESPIRATORY TRACT INFECTION [None]
  - GRAFT VERSUS HOST DISEASE [None]
